FAERS Safety Report 11096964 (Version 2)
Quarter: 2015Q2

REPORT INFORMATION
  Report Type: Other
  Country: IT (occurrence: IT)
  Receive Date: 20150507
  Receipt Date: 20150601
  Transmission Date: 20150821
  Serious: Yes (Other)
  Sender: FDA-Public Use
  Company Number: IT-APOTEX-2015AP008840

PATIENT
  Age: 47 Year
  Sex: Female
  Weight: 112 kg

DRUGS (7)
  1. FLUIMUCIL [Concomitant]
     Active Substance: ACETYLCYSTEINE
     Indication: PRODUCT USED FOR UNKNOWN INDICATION
  2. CLENIL                             /00212602/ [Concomitant]
     Indication: PRODUCT USED FOR UNKNOWN INDICATION
  3. BRONCOVALEAS                       /00139501/ [Concomitant]
     Active Substance: ALBUTEROL
     Indication: PRODUCT USED FOR UNKNOWN INDICATION
  4. LEVOFLOXACINA EG [Suspect]
     Active Substance: LEVOFLOXACIN
     Indication: PNEUMONITIS
     Dosage: 1 DF, QD
     Route: 048
     Dates: start: 20150203, end: 20150211
  5. ATEM [Concomitant]
     Active Substance: IPRATROPIUM BROMIDE
     Indication: PRODUCT USED FOR UNKNOWN INDICATION
  6. MEDROL [Concomitant]
     Active Substance: METHYLPREDNISOLONE
     Indication: PRODUCT USED FOR UNKNOWN INDICATION
  7. CLARITHROMYCIN. [Suspect]
     Active Substance: CLARITHROMYCIN
     Indication: PNEUMONITIS
     Dosage: 1000 MG, DAILY
     Route: 048
     Dates: start: 20150129, end: 20150207

REACTIONS (4)
  - Angioedema [Recovered/Resolved]
  - Drug interaction [Recovered/Resolved]
  - Paraesthesia oral [Recovered/Resolved]
  - Tongue exfoliation [Recovered/Resolved]

NARRATIVE: CASE EVENT DATE: 20150205
